FAERS Safety Report 5470171-7 (Version None)
Quarter: 2007Q3

REPORT INFORMATION
  Report Type: 
  Country: None (occurrence: None)
  Receive Date: 20070927
  Receipt Date: 20070912
  Transmission Date: 20080115
  Serious: Yes (Death)
  Sender: FDA-Public Use
  Company Number: MX-GENENTECH-247618

PATIENT
  Age: 9 Month
  Sex: Male

DRUGS (1)
  1. LUCENTIS [Suspect]
     Indication: RETINOPATHY OF PREMATURITY
     Dosage: 0.5 MG, UNK
     Route: 031

REACTIONS (1)
  - MULTI-ORGAN FAILURE [None]
